FAERS Safety Report 14317956 (Version 2)
Quarter: 2017Q4

REPORT INFORMATION
  Report Type: Report from Study
  Country: GB (occurrence: GB)
  Receive Date: 20171222
  Receipt Date: 20171229
  Transmission Date: 20180321
  Serious: Yes (Hospitalization)
  Sender: FDA-Public Use
  Company Number: GB-ROCHE-2044644

PATIENT
  Age: 55 Year
  Sex: Female
  Weight: 79.3 kg

DRUGS (10)
  1. CODEINE [Concomitant]
     Active Substance: CODEINE
     Route: 065
     Dates: start: 20170728
  2. ZOPICLONE [Concomitant]
     Active Substance: ZOPICLONE
     Route: 065
     Dates: start: 20170918
  3. BECONASE AQ [Concomitant]
     Active Substance: BECLOMETHASONE DIPROPIONATE MONOHYDRATE
     Dosage: 1 PUFF
     Route: 065
     Dates: start: 20160422
  4. DIFFLAM [Concomitant]
     Active Substance: BENZYDAMINE HYDROCHLORIDE
     Dosage: ORAL RINSE
     Route: 065
     Dates: start: 20170324
  5. OMEPRAZOL [Concomitant]
     Active Substance: OMEPRAZOLE
     Route: 065
     Dates: start: 20160613
  6. ATEZOLIZUMAB. [Suspect]
     Active Substance: ATEZOLIZUMAB
     Indication: RENAL CELL CARCINOMA
     Dosage: DAYS 1 AND 22 OF EACH 42-DAY CYCLE ?DATE OF MOST RECENT DOSE PRIOR TO THE SERIOUS ADVERSE EVENT: 04/
     Route: 042
     Dates: start: 20160219
  7. BEVACIZUMAB. [Suspect]
     Active Substance: BEVACIZUMAB
     Indication: RENAL CELL CARCINOMA
     Dosage: ON DAYS 1 AND 22 OF EACH 42-DAY CYCLE?DATE OF MOST RECENT DOSE PRIOR TO THE SERIOUS ADVERSE EVENT: 0
     Route: 042
     Dates: start: 20160219
  8. IBUPROFEN. [Concomitant]
     Active Substance: IBUPROFEN
     Route: 065
     Dates: start: 20171110
  9. ORAMORPH [Concomitant]
     Active Substance: MORPHINE SULFATE
     Route: 065
     Dates: start: 20160513
  10. PARACETAMOL [Concomitant]
     Active Substance: ACETAMINOPHEN
     Route: 065
     Dates: start: 20160509

REACTIONS (2)
  - Lower respiratory tract infection [Recovering/Resolving]
  - Upper respiratory tract infection [Recovering/Resolving]

NARRATIVE: CASE EVENT DATE: 20171213
